FAERS Safety Report 4319116-3 (Version None)
Quarter: 2004Q1

REPORT INFORMATION
  Report Type: 
  Country: None (occurrence: None)
  Receive Date: 20040318
  Receipt Date: 20040318
  Transmission Date: 20041129
  Serious: Yes (Disabling)
  Sender: FDA-Public Use
  Company Number: None

PATIENT
  Sex: Female
  Weight: 72.5755 kg

DRUGS (1)
  1. LUPRON [Suspect]
     Indication: UTERINE LEIOMYOMA
     Dosage: MONTHLY X INTRAVENOUS
     Route: 042
     Dates: start: 19990401, end: 19990601

REACTIONS (2)
  - AMNESIA [None]
  - COGNITIVE DISORDER [None]
